FAERS Safety Report 17267352 (Version 3)
Quarter: 2020Q1

REPORT INFORMATION
  Report Type: Spontaneous
  Country: SK (occurrence: SK)
  Receive Date: 20200114
  Receipt Date: 20200127
  Transmission Date: 20200409
  Serious: Yes (Other)
  Sender: FDA-Public Use
  Company Number: NVSC2020SK005008

PATIENT
  Age: 54 Year
  Sex: Female

DRUGS (6)
  1. BECLOMETASONE [Concomitant]
     Active Substance: BECLOMETHASONE DIPROPIONATE
     Indication: PRODUCT USED FOR UNKNOWN INDICATION
     Route: 065
  2. GLYCERYL TRINITRATE [Concomitant]
     Active Substance: NITROGLYCERIN
     Indication: PRODUCT USED FOR UNKNOWN INDICATION
     Route: 065
  3. MONTELUKAST [Suspect]
     Active Substance: MONTELUKAST SODIUM
     Indication: ASTHMA
     Dosage: UNK
     Route: 065
  4. RUPATADINE [Concomitant]
     Active Substance: RUPATADINE
     Indication: PRODUCT USED FOR UNKNOWN INDICATION
     Route: 065
  5. NITROGLYCERIN. [Concomitant]
     Active Substance: NITROGLYCERIN
     Indication: PRODUCT USED FOR UNKNOWN INDICATION
     Route: 065
  6. VERAPAMIL [Concomitant]
     Active Substance: VERAPAMIL HYDROCHLORIDE
     Indication: PRODUCT USED FOR UNKNOWN INDICATION
     Dosage: 240 MG
     Route: 065

REACTIONS (5)
  - Chest pain [Recovered/Resolved]
  - Medication error [Recovered/Resolved]
  - Chest discomfort [Recovered/Resolved]
  - Angina pectoris [Recovered/Resolved]
  - Autonomic nervous system imbalance [Recovered/Resolved]

NARRATIVE: CASE EVENT DATE: 201612
